FAERS Safety Report 8554137-6 (Version None)
Quarter: 2012Q3

REPORT INFORMATION
  Report Type: 
  Country: None (occurrence: None)
  Receive Date: 20120731
  Receipt Date: 20120727
  Transmission Date: 20120928
  Serious: Yes (Other)
  Sender: FDA-Public Use
  Company Number: PHHY2012CA046036

PATIENT
  Sex: Female

DRUGS (5)
  1. ZOLEDRONOC ACID [Suspect]
     Indication: OSTEOPOROSIS
     Route: 042
     Dates: start: 20120511
  2. OXYCODONE HCL [Concomitant]
     Dosage: 1 DF, BID FOR THREE MONTHS
     Dates: start: 20120327
  3. OXYCONTIN [Concomitant]
     Dosage: 1 DF, BID FOR 3 MONTHS
     Dates: start: 20120322
  4. OXYCET [Concomitant]
     Indication: BREAKTHROUGH PAIN
     Dosage: 1 DF, PRN (BID FOR THREE MONTHS)
     Route: 048
     Dates: start: 20120620
  5. PREDNISONE [Concomitant]
     Indication: RHEUMATOID ARTHRITIS
     Dosage: 3 DF, UNK
     Route: 048

REACTIONS (1)
  - LYMPHOCYTOSIS [None]
